FAERS Safety Report 16641917 (Version 1)
Quarter: 2019Q3

REPORT INFORMATION
  Report Type: Spontaneous
  Country: IT (occurrence: IT)
  Receive Date: 20190729
  Receipt Date: 20190729
  Transmission Date: 20191004
  Serious: Yes (Hospitalization)
  Sender: FDA-Public Use
  Company Number: IT-TEVA-2019-IT-1083953

PATIENT
  Age: 32 Year
  Sex: Male

DRUGS (5)
  1. IBUPROFEN. [Suspect]
     Active Substance: IBUPROFEN
     Indication: BACK PAIN
     Route: 065
  2. MESTEROLONE [Concomitant]
     Active Substance: MESTEROLONE
     Indication: LIBIDO DECREASED
     Route: 065
  3. ENANTONE LP [Suspect]
     Active Substance: LEUPROLIDE ACETATE
     Indication: SUPPLEMENTATION THERAPY
     Route: 030
  4. TESTOSTERONE ENANTHATE. [Concomitant]
     Active Substance: TESTOSTERONE ENANTHATE
     Route: 030
  5. STANOZOLOL [Suspect]
     Active Substance: STANOZOLOL
     Indication: SUPPLEMENTATION THERAPY
     Route: 048

REACTIONS (8)
  - Cardiomegaly [Recovering/Resolving]
  - Overdose [Recovering/Resolving]
  - End stage renal disease [Recovering/Resolving]
  - Drug abuse [Recovering/Resolving]
  - Nephrotic syndrome [Recovering/Resolving]
  - Ventricular hypokinesia [Recovering/Resolving]
  - Hypertension [Recovering/Resolving]
  - Focal segmental glomerulosclerosis [Recovering/Resolving]
